FAERS Safety Report 8172031-X (Version None)
Quarter: 2012Q1

REPORT INFORMATION
  Report Type: 
  Country: None (occurrence: None)
  Receive Date: 20120228
  Receipt Date: 20120220
  Transmission Date: 20120608
  Serious: Yes (Other)
  Sender: FDA-Public Use
  Company Number: PHHY2011GB74019

PATIENT
  Age: 47 Year
  Sex: Male

DRUGS (9)
  1. CLOZAPINE [Interacting]
     Dosage: 350 MG, QD
     Dates: start: 20110909
  2. CLOZAPINE [Interacting]
     Indication: SCHIZOPHRENIA
     Dosage: 450 MG, QD
     Route: 048
  3. CLOZAPINE [Interacting]
     Dosage: 400 MG, QD
     Dates: start: 20110809
  4. HYOSCINE [Concomitant]
     Dosage: 300 UG, UNK
     Dates: start: 20090701
  5. FLUOXETINE [Suspect]
     Indication: OBSESSIVE-COMPULSIVE DISORDER
     Dosage: 40 MG, QD
  6. CLOZAPINE [Interacting]
     Dosage: 550 MG, QD
     Route: 048
  7. OMEPRAZOLE [Concomitant]
     Indication: GASTROOESOPHAGEAL REFLUX DISEASE
  8. CLOZAPINE [Interacting]
     Dosage: 500 MG, QD
     Route: 048
  9. CLOZAPINE [Interacting]
     Dosage: 300 MG, BID
     Route: 048
     Dates: start: 20090728

REACTIONS (13)
  - DRUG INTERACTION [None]
  - C-REACTIVE PROTEIN INCREASED [None]
  - IMMUNODEFICIENCY [None]
  - HYPERHIDROSIS [None]
  - GAMMA-GLUTAMYLTRANSFERASE INCREASED [None]
  - PROTEIN TOTAL DECREASED [None]
  - WEIGHT DECREASED [None]
  - ABDOMINAL PAIN [None]
  - DECREASED APPETITE [None]
  - DIARRHOEA [None]
  - BLOOD ALKALINE PHOSPHATASE INCREASED [None]
  - LETHARGY [None]
  - COUGH [None]
